FAERS Safety Report 8054478-5 (Version None)
Quarter: 2012Q1

REPORT INFORMATION
  Report Type: 
  Country: None (occurrence: None)
  Receive Date: 20120118
  Receipt Date: 20120112
  Transmission Date: 20120608
  Serious: Yes (Hospitalization, Disabling)
  Sender: FDA-Public Use
  Company Number: US-MERCK-1108USA03121

PATIENT
  Age: 52 Year
  Sex: Female
  Weight: 75 kg

DRUGS (3)
  1. FOSAMAX [Suspect]
     Indication: PROPHYLAXIS
     Route: 048
     Dates: start: 20010601
  2. FOSAMAX PLUS D [Suspect]
     Indication: PROPHYLAXIS
     Route: 048
     Dates: start: 20061101, end: 20080801
  3. INDAPAMIDE [Concomitant]
     Route: 065
     Dates: start: 20000228

REACTIONS (12)
  - OSTEOPENIA [None]
  - FLUID RETENTION [None]
  - BUNION [None]
  - INCREASED TENDENCY TO BRUISE [None]
  - RESPIRATORY DISORDER [None]
  - TRIGGER FINGER [None]
  - HAEMATOMA [None]
  - LIMB ASYMMETRY [None]
  - NEPHROLITHIASIS [None]
  - BLOOD POTASSIUM DECREASED [None]
  - FEMUR FRACTURE [None]
  - MUSCULOSKELETAL DISORDER [None]
